FAERS Safety Report 18534881 (Version 2)
Quarter: 2020Q4

REPORT INFORMATION
  Report Type: Report from Study
  Country: US (occurrence: US)
  Receive Date: 20201123
  Receipt Date: 20201127
  Transmission Date: 20210114
  Serious: Yes (Life-Threatening, Hospitalization)
  Sender: FDA-Public Use
  Company Number: US-ASTRAZENECA-2020SF49310

PATIENT
  Age: 30105 Day
  Sex: Female

DRUGS (8)
  1. PRAVASTATIN. [Concomitant]
     Active Substance: PRAVASTATIN
     Indication: HYPERLIPIDAEMIA
     Route: 048
     Dates: start: 2012
  2. ACETAMINOPHEN(TYLENOL) [Concomitant]
     Indication: BACK PAIN
     Dosage: 200.0MG AS REQUIRED
     Route: 048
     Dates: start: 20201014, end: 20201110
  3. ACETAMINOPHEN. [Concomitant]
     Active Substance: ACETAMINOPHEN
     Indication: BACK PAIN
     Dosage: 1000.0MG AS REQUIRED
     Route: 048
     Dates: start: 20201111
  4. TREMELIMUMAB. [Suspect]
     Active Substance: TREMELIMUMAB
     Indication: SMALL CELL LUNG CANCER LIMITED STAGE
     Route: 042
     Dates: start: 20200916, end: 20200916
  5. DURVALUMAB. [Suspect]
     Active Substance: DURVALUMAB
     Indication: SMALL CELL LUNG CANCER LIMITED STAGE
     Route: 042
     Dates: start: 20200916, end: 20200916
  6. VITAMIN D3 [Concomitant]
     Active Substance: CHOLECALCIFEROL
     Indication: VITAMIN D DEFICIENCY
     Route: 048
     Dates: start: 202007
  7. TREMELIMUMAB. [Suspect]
     Active Substance: TREMELIMUMAB
     Indication: SMALL CELL LUNG CANCER LIMITED STAGE
     Route: 042
     Dates: start: 20201014, end: 20201014
  8. DURVALUMAB. [Suspect]
     Active Substance: DURVALUMAB
     Indication: SMALL CELL LUNG CANCER LIMITED STAGE
     Route: 042
     Dates: start: 20201014, end: 20201014

REACTIONS (1)
  - Sepsis [Recovered/Resolved]

NARRATIVE: CASE EVENT DATE: 20201111
